FAERS Safety Report 13084687 (Version 2)
Quarter: 2017Q1

REPORT INFORMATION
  Report Type: Report from Study
  Country: US (occurrence: US)
  Receive Date: 20170104
  Receipt Date: 20170329
  Transmission Date: 20170428
  Serious: No
  Sender: FDA-Public Use
  Company Number: US-TAKEDA-2017TJP000109

PATIENT
  Sex: Male
  Weight: 95 kg

DRUGS (19)
  1. LYRICA [Concomitant]
     Active Substance: PREGABALIN
     Dosage: UNK UNK, BID
     Route: 048
     Dates: start: 20151028
  2. NEXIUM [Concomitant]
     Active Substance: ESOMEPRAZOLE MAGNESIUM
     Dosage: UNK UNK, QD
     Route: 048
     Dates: start: 20161115
  3. PROSCAR [Concomitant]
     Active Substance: FINASTERIDE
     Dosage: UNK UNK, QD
     Route: 048
     Dates: start: 20161115
  4. PROTONIX [Suspect]
     Active Substance: PANTOPRAZOLE SODIUM
     Indication: PRODUCT USED FOR UNKNOWN INDICATION
     Dosage: UNK
     Route: 065
  5. CLONIDINE HCL [Concomitant]
     Active Substance: CLONIDINE HYDROCHLORIDE
     Dosage: 0.1 MG, BID
     Route: 048
     Dates: start: 20161216
  6. IODINE. [Suspect]
     Active Substance: IODINE
     Indication: PRODUCT USED FOR UNKNOWN INDICATION
     Dosage: UNK
     Route: 065
  7. LOSARTAN                           /01121602/ [Concomitant]
     Active Substance: LOSARTAN
     Dosage: UNK UNK, QD
     Route: 048
     Dates: start: 20161117
  8. METFORMIN [Concomitant]
     Active Substance: METFORMIN HYDROCHLORIDE
     Dosage: UNK UNK, BID
     Route: 048
     Dates: start: 20160930
  9. NITROGLYCERIN. [Concomitant]
     Active Substance: NITROGLYCERIN
     Dosage: UNK
     Route: 060
     Dates: start: 20160509
  10. DEXLANSOPRAZOLE [Suspect]
     Active Substance: DEXLANSOPRAZOLE
     Indication: PRODUCT USED FOR UNKNOWN INDICATION
     Dosage: UNK
     Route: 065
  11. WARFARIN [Suspect]
     Active Substance: WARFARIN
     Indication: PRODUCT USED FOR UNKNOWN INDICATION
     Dosage: UNK
     Route: 065
  12. INSULIN DETEMIR [Concomitant]
     Active Substance: INSULIN DETEMIR
     Dosage: UNK UNK, BID
     Route: 058
     Dates: start: 20161115
  13. METOPROLOL TARTRATE. [Concomitant]
     Active Substance: METOPROLOL TARTRATE
     Dosage: UNK UNK, BID
     Route: 048
     Dates: start: 20160818
  14. BETAMETHASONE VALERATE. [Concomitant]
     Active Substance: BETAMETHASONE VALERATE
     Dosage: UNK, BID
     Dates: start: 20140422
  15. HYDROCHLOROTHIAZIDE. [Concomitant]
     Active Substance: HYDROCHLOROTHIAZIDE
     Dosage: UNK UNK, QD
     Route: 048
     Dates: start: 20151222
  16. LIPITOR [Concomitant]
     Active Substance: ATORVASTATIN CALCIUM
     Dosage: UNK UNK, QD
     Route: 048
     Dates: start: 20160509
  17. CLOPIDOGREL BISULFATE. [Concomitant]
     Active Substance: CLOPIDOGREL BISULFATE
     Dosage: UNK UNK, QD
     Route: 048
     Dates: start: 20160808
  18. VITAMIN D2 [Concomitant]
     Active Substance: ERGOCALCIFEROL
     Dosage: UNK UNK, 1/WEEK
     Route: 048
     Dates: start: 20140520
  19. XANAX [Concomitant]
     Active Substance: ALPRAZOLAM
     Dosage: UNK
     Route: 048
     Dates: start: 20161115

REACTIONS (1)
  - Drug hypersensitivity [Unknown]
